FAERS Safety Report 5599403-1 (Version None)
Quarter: 2007Q4

REPORT INFORMATION
  Report Type: 
  Country: None (occurrence: None)
  Receive Date: 20071226
  Receipt Date: 20071130
  Transmission Date: 20080405
  Serious: No
  Sender: FDA-Public Use
  Company Number: 2007PV033787

PATIENT
  Age: 63 Year
  Sex: Male
  Weight: 125.1928 kg

DRUGS (12)
  1. SYMLIN [Suspect]
     Indication: TYPE 2 DIABETES MELLITUS
     Dosage: 60 MCG, TID, SC
     Route: 058
     Dates: start: 20071110
  2. LANTUS [Concomitant]
  3. HUMALOG [Concomitant]
  4. HUMULIN N [Concomitant]
  5. JANUVIA [Concomitant]
  6. BENACAR [Concomitant]
  7. FUROSEMIDE [Concomitant]
  8. LOPRESSOR [Concomitant]
  9. ASCORBIC ACID [Concomitant]
  10. SPIRALDACTONE [Concomitant]
  11. ASPIRIN [Concomitant]
  12. DARVOCET-N [Concomitant]

REACTIONS (8)
  - BLOOD GLUCOSE DECREASED [None]
  - DISTURBANCE IN ATTENTION [None]
  - DRUG INTERACTION [None]
  - HYPERHIDROSIS [None]
  - NAUSEA [None]
  - PAIN [None]
  - TREMOR [None]
  - VOMITING [None]
